APPROVED DRUG PRODUCT: NAPROXEN SODIUM
Active Ingredient: NAPROXEN SODIUM
Strength: EQ 250MG BASE
Dosage Form/Route: TABLET;ORAL
Application: A074289 | Product #001
Applicant: TEVA PHARMACEUTICALS USA
Approved: Jan 27, 1994 | RLD: No | RS: No | Type: DISCN